FAERS Safety Report 23326180 (Version 1)
Quarter: 2023Q4

REPORT INFORMATION
  Report Type: Spontaneous
  Country: US (occurrence: US)
  Receive Date: 20231221
  Receipt Date: 20231221
  Transmission Date: 20240110
  Serious: No
  Sender: FDA-Public Use
  Company Number: US-009507513-2311USA010531

PATIENT
  Age: 71 Year
  Sex: Female

DRUGS (2)
  1. WELIREG [Suspect]
     Active Substance: BELZUTIFAN
     Indication: Haemangioblastoma
     Dosage: 120 MG DAILY
     Route: 048
  2. WELIREG [Suspect]
     Active Substance: BELZUTIFAN
     Dosage: 80 MG DAILY
     Route: 048

REACTIONS (2)
  - Anaemia [Recovered/Resolved]
  - Off label use [Unknown]
